FAERS Safety Report 6913982-0 (Version None)
Quarter: 2010Q3

REPORT INFORMATION
  Report Type: 
  Country: None (occurrence: None)
  Receive Date: 20100809
  Receipt Date: 20100726
  Transmission Date: 20110219
  Serious: Yes (Other)
  Sender: FDA-Public Use
  Company Number: PHFR2010GB01047

PATIENT
  Sex: Male
  Weight: 65 kg

DRUGS (4)
  1. CLOZARIL [Suspect]
     Indication: SCHIZOPHRENIA
     Dosage: 350 MG/DAY
     Route: 048
     Dates: start: 20090907
  2. OMEPRAZOLE [Concomitant]
     Dosage: 20 MG, QD
     Route: 048
  3. FERROUS FUMARATE [Concomitant]
     Dosage: 280 MG, BID
     Route: 048
  4. LOPERAMIDE [Concomitant]
     Dosage: 1 MG, QD

REACTIONS (1)
  - ANTIPSYCHOTIC DRUG LEVEL BELOW THERAPEUTIC [None]
